FAERS Safety Report 13772410 (Version 3)
Quarter: 2021Q1

REPORT INFORMATION
  Report Type: Spontaneous
  Country: JP (occurrence: JP)
  Receive Date: 20170720
  Receipt Date: 20210326
  Transmission Date: 20210419
  Serious: Yes (Hospitalization)
  Sender: FDA-Public Use
  Company Number: JP-ELI_LILLY_AND_COMPANY-JP201707004881

PATIENT
  Age: 71 Year
  Sex: Male
  Weight: 57 kg

DRUGS (10)
  1. AVASTIN [Suspect]
     Active Substance: BEVACIZUMAB
     Indication: COLON CANCER RECURRENT
     Dosage: 310 MG, OTHER
     Route: 041
     Dates: start: 20160404, end: 20170419
  2. ADALAT [Concomitant]
     Active Substance: NIFEDIPINE
     Indication: HYPERTENSION
     Dosage: 80 MG, DAILY
     Route: 048
  3. MAGMITT [Concomitant]
     Active Substance: MAGNESIUM OXIDE
     Indication: PROPHYLAXIS
     Dosage: 990 MG, DAILY
  4. 5 FU [Concomitant]
     Active Substance: FLUOROURACIL
     Indication: COLON CANCER RECURRENT
     Dosage: 475 MG, UNK
     Route: 040
     Dates: start: 20170508, end: 20170508
  5. LEVOFOLINATE CALCIUM [Concomitant]
     Active Substance: LEVOLEUCOVORIN CALCIUM
     Indication: COLON CANCER RECURRENT
     Dosage: 325 MG, UNK
     Route: 041
     Dates: start: 20170508, end: 20170508
  6. IRINOTECAN [Concomitant]
     Active Substance: IRINOTECAN
     Indication: COLON CANCER RECURRENT
     Dosage: 213 MG, OTHER
     Route: 041
     Dates: start: 20170508, end: 20170508
  7. CYRAMZA [Suspect]
     Active Substance: RAMUCIRUMAB
     Indication: COLON CANCER RECURRENT
     Dosage: 492 MG, OTHER
     Route: 041
     Dates: start: 20170508, end: 20170508
  8. 5 FU [Concomitant]
     Active Substance: FLUOROURACIL
     Dosage: 2850 MG, UNK
     Route: 041
     Dates: start: 20170508, end: 20170510
  9. FUROSEMIDE. [Concomitant]
     Active Substance: FUROSEMIDE
     Indication: HYPERTENSION
     Dosage: 20 MG, DAILY
     Route: 048
     Dates: end: 20170523
  10. CANDESARTAN. [Concomitant]
     Active Substance: CANDESARTAN
     Indication: HYPERTENSION
     Dosage: 4 MG, DAILY
     Route: 048

REACTIONS (1)
  - Acute kidney injury [Recovering/Resolving]

NARRATIVE: CASE EVENT DATE: 20170524
